FAERS Safety Report 18366410 (Version 1)
Quarter: 2020Q4

REPORT INFORMATION
  Report Type: Spontaneous
  Country: US (occurrence: US)
  Receive Date: 20201009
  Receipt Date: 20201009
  Transmission Date: 20210114
  Serious: Yes (Death)
  Sender: FDA-Public Use
  Company Number: US-BAYER-2020-212661

PATIENT
  Age: 41 Year
  Sex: Female

DRUGS (1)
  1. DROSPIRENONE + ETHINYLESTRADIOL [Suspect]
     Active Substance: DROSPIRENONE\ETHINYL ESTRADIOL
     Route: 048

REACTIONS (6)
  - Superior sagittal sinus thrombosis [Fatal]
  - Cerebral venous sinus thrombosis [Fatal]
  - Thrombosis in device [Fatal]
  - Brain oedema [Fatal]
  - Transverse sinus thrombosis [Fatal]
  - Intraventricular haemorrhage [Fatal]
